FAERS Safety Report 18820585 (Version 1)
Quarter: 2021Q1

REPORT INFORMATION
  Report Type: Spontaneous
  Country: GB (occurrence: GB)
  Receive Date: 20210202
  Receipt Date: 20210202
  Transmission Date: 20210419
  Serious: Yes (Other)
  Sender: FDA-Public Use
  Company Number: GB-MICRO LABS LIMITED-ML2021-00272

PATIENT
  Age: 80 Year
  Sex: Female
  Weight: 59 kg

DRUGS (25)
  1. ATORVASTATIN [Concomitant]
     Active Substance: ATORVASTATIN
     Dosage: AT NIGHT
     Dates: start: 20200706
  2. AVAMYS [Concomitant]
     Active Substance: FLUTICASONE FUROATE
     Dosage: INTO EACH NOSTRIL
     Route: 045
     Dates: start: 20200706
  3. FUROSEMIDE. [Concomitant]
     Active Substance: FUROSEMIDE
     Dosage: EACH MORNING
     Dates: start: 20200706
  4. LACTULOSE. [Concomitant]
     Active Substance: LACTULOSE
     Dosage: ONCE OR TWICE DAILY
     Dates: start: 20200818
  5. NYSTATIN. [Concomitant]
     Active Substance: NYSTATIN
     Dosage: 4 [DRP]
     Dates: start: 20201201, end: 20201215
  6. ORAMORPH [Concomitant]
     Active Substance: MORPHINE SULFATE
     Indication: ANXIETY
     Dosage: FROM 2.5MG (1.25MLS) TO 5MG (2.5MLS) UP TO 6 TIMES DAILY
     Dates: start: 20210118
  7. CARBOCISTEINE [Concomitant]
     Active Substance: CARBOCYSTEINE
     Dates: start: 20201128
  8. FLUOXETINE [Concomitant]
     Active Substance: FLUOXETINE HYDROCHLORIDE
     Dates: start: 20200706
  9. CO?AMOXICLAV [Concomitant]
     Active Substance: AMOXICILLIN\CLAVULANATE POTASSIUM
     Dates: start: 20201027, end: 20201103
  10. OMEPRAZOLE. [Concomitant]
     Active Substance: OMEPRAZOLE
     Dates: start: 20200706
  11. AMOXICILLIN/CLAVULANIC ACID [Suspect]
     Active Substance: AMOXICILLIN\CLAVULANIC ACID
     Indication: GASTROENTERITIS
     Dosage: 875MG/125MG
  12. GLYCOPYRRONIUM BROMIDE [Concomitant]
     Active Substance: GLYCOPYRRONIUM
     Dosage: 200 UG, 1ML
     Route: 058
     Dates: start: 20210115
  13. SOTALOL. [Concomitant]
     Active Substance: SOTALOL
     Dosage: AT NIGHT
     Dates: start: 20200706
  14. APIXABAN [Concomitant]
     Active Substance: APIXABAN
     Dates: start: 20200706
  15. NUTRITIONAL SUPPLEMENT [Concomitant]
     Active Substance: DIETARY SUPPLEMENT
     Dosage: TAKE THE CONTENTS OF ONE CARTON/BOTTLE
     Dates: start: 20200825, end: 20201130
  16. LORAZEPAM. [Concomitant]
     Active Substance: LORAZEPAM
     Indication: ANXIETY
     Dosage: TAKE HALF TO ONE UP TO TW
     Dates: start: 20201224
  17. MICONAZOLE. [Concomitant]
     Active Substance: MICONAZOLE
     Dates: start: 20210118
  18. MORPHINE SULFATE. [Concomitant]
     Active Substance: MORPHINE SULFATE
     Dosage: 2.5?5MG (0.25?0.5ML)
     Route: 058
     Dates: start: 20210115
  19. COCODAMOL [Concomitant]
     Active Substance: ACETAMINOPHEN\CODEINE PHOSPHATE
     Dosage: TAKE 1 DAILY OR 2 4 TIMES A DAY
     Dates: start: 20201027, end: 20201124
  20. LEVOTHYROXINE. [Concomitant]
     Active Substance: LEVOTHYROXINE
     Dosage: EACH MORNING AT LEAST 30 MINUTE
     Dates: start: 20200706
  21. RILUZOLE. [Concomitant]
     Active Substance: RILUZOLE
     Dates: start: 20200721
  22. NUTRITIONAL SUPPLEMENT [Concomitant]
     Active Substance: DIETARY SUPPLEMENT
     Dosage: USE AS DIRECTED
     Dates: start: 20201130
  23. MIDAZOLAM. [Concomitant]
     Active Substance: MIDAZOLAM
     Dosage: 2.5?5MG (0.5?1ML)
     Route: 058
     Dates: start: 20210115
  24. CYCLIZINE [Concomitant]
     Active Substance: CYCLIZINE
     Dosage: 1ML
     Route: 058
     Dates: start: 20210115
  25. PERINDOPRIL ERBUMINE. [Concomitant]
     Active Substance: PERINDOPRIL ERBUMINE
     Dates: start: 20200706

REACTIONS (2)
  - Drug ineffective [Unknown]
  - Gastroenteritis [Recovered/Resolved]
